FAERS Safety Report 5885807-6 (Version None)
Quarter: 2008Q3

REPORT INFORMATION
  Report Type: 
  Country: None (occurrence: None)
  Receive Date: 20080917
  Receipt Date: 20080905
  Transmission Date: 20090109
  Serious: Yes (Other)
  Sender: FDA-Public Use
  Company Number: US-JNJFOC-20080902086

PATIENT
  Sex: Female

DRUGS (2)
  1. FENTANYL TRANSDERMAL SYSTEM [Suspect]
     Indication: BACK PAIN
     Dosage: 25 UG/HR AND 100 UG/HR PATCHES
     Route: 062
  2. KLONOPIN [Concomitant]
     Dosage: HALF OF A 1 MG TABLET
     Route: 048

REACTIONS (6)
  - CHILLS [None]
  - ERYTHEMA [None]
  - FEELING HOT [None]
  - HYPERHIDROSIS [None]
  - SKIN EXFOLIATION [None]
  - TREMOR [None]
